FAERS Safety Report 12928274 (Version 1)
Quarter: 2016Q4

REPORT INFORMATION
  Report Type: Spontaneous
  Country: US (occurrence: US)
  Receive Date: 20161110
  Receipt Date: 20161110
  Transmission Date: 20170207
  Serious: Yes (Other)
  Sender: FDA-Public Use
  Company Number: US-AMGEN-USASP2016137987

PATIENT
  Age: 74 Year
  Sex: Female
  Weight: 75.3 kg

DRUGS (13)
  1. VITAMIN B12 [Concomitant]
     Active Substance: CYANOCOBALAMIN
     Dosage: 1000 MUG/ML, QMO
     Route: 030
     Dates: start: 20160422
  2. VITAMIN D3 [Concomitant]
     Active Substance: CHOLECALCIFEROL
     Dosage: 1000 UNIT, BID
     Route: 048
  3. COENZYME Q10 [Concomitant]
     Active Substance: UBIDECARENONE
     Dosage: 1 DF, QD
  4. PROLIA [Suspect]
     Active Substance: DENOSUMAB
     Indication: OSTEOPOROSIS POSTMENOPAUSAL
     Dosage: 60 MG, Q6MO
     Route: 058
     Dates: start: 20160422
  5. CRANBERRY. [Concomitant]
     Active Substance: CRANBERRY
     Dosage: 4200 MG, QD
  6. EFFEXOR [Concomitant]
     Active Substance: VENLAFAXINE HYDROCHLORIDE
     Dosage: 75 MG, QD
     Route: 048
  7. MULTIVITAMIN [Concomitant]
     Active Substance: VITAMINS
     Dosage: UNK UNK, QD
  8. METHYLPREDNISOLONE. [Concomitant]
     Active Substance: METHYLPREDNISOLONE
     Dosage: 4 MG, QD
  9. ALENDRONATE [Concomitant]
     Active Substance: ALENDRONATE SODIUM
     Dosage: 70 MG, QWK
     Route: 048
  10. MAGNESIUM [Concomitant]
     Active Substance: MAGNESIUM
     Dosage: 250 MG, QD
     Route: 048
  11. CALCIUM [Concomitant]
     Active Substance: CALCIUM
     Dosage: UNK UNK, BID
  12. ARMOUR THYROID [Concomitant]
     Active Substance: THYROID, PORCINE
     Dosage: 30 MG, QD
     Route: 048
  13. PROBIOTIC [Concomitant]
     Active Substance: PROBIOTICS NOS
     Dosage: 1 DF, QD

REACTIONS (3)
  - Dermatomyositis [Not Recovered/Not Resolved]
  - Chronic fatigue syndrome [Unknown]
  - Anxiety [Unknown]

NARRATIVE: CASE EVENT DATE: 2016
